FAERS Safety Report 4944638-1 (Version None)
Quarter: 2006Q1

REPORT INFORMATION
  Report Type: 
  Country: None (occurrence: None)
  Receive Date: 20060113
  Receipt Date: 20050104
  Transmission Date: 20060701
  Serious: Yes (Other)
  Sender: FDA-Public Use
  Company Number: HQWYE203316JUL04

PATIENT
  Age: 75 Year
  Sex: Female
  Weight: 123.49 kg

DRUGS (1)
  1. PREMPRO [Suspect]
     Indication: CARDIAC DISORDER
     Dosage: 0.625 MG/2.5 ORAL
     Route: 048
     Dates: start: 19970811

REACTIONS (3)
  - DEEP VEIN THROMBOSIS [None]
  - PULMONARY EMBOLISM [None]
  - VAGINAL HAEMORRHAGE [None]
